FAERS Safety Report 8158770 (Version 3)
Quarter: 2013Q1

REPORT INFORMATION
  Report Type: Spontaneous
  Country: US (occurrence: US)
  Receive Date: 20110927
  Receipt Date: 20130119
  Transmission Date: 20140127
  Serious: Yes (Hospitalization, Other)
  Sender: FDA-Public Use
  Company Number: US-TEVA-302605USA

PATIENT
  Age: 21 Year
  Sex: Female
  Weight: 61.29 kg

DRUGS (1)
  1. PLAN B ONE-STEP [Suspect]
     Indication: POST COITAL CONTRACEPTION
     Dosage: 1.5 MILLIGRAM DAILY;
     Route: 048
     Dates: start: 20110912, end: 20110912

REACTIONS (19)
  - Abortion spontaneous [Recovered/Resolved]
  - Vaginal haemorrhage [Unknown]
  - Myocardial infarction [Recovered/Resolved]
  - Palpitations [Unknown]
  - Abdominal pain [Unknown]
  - Nausea [Unknown]
  - Vomiting [Unknown]
  - Hormone level abnormal [Unknown]
  - Cardiac disorder [Unknown]
  - Muscle spasms [Unknown]
  - Drug hypersensitivity [Unknown]
  - Benign neoplasm [Unknown]
  - Endometriosis [Unknown]
  - Urticaria [Recovered/Resolved]
  - Exposure during pregnancy [Recovered/Resolved]
  - Pregnancy [Recovered/Resolved]
  - Headache [Unknown]
  - Dizziness [Recovered/Resolved]
  - Menstruation irregular [Recovered/Resolved]
